FAERS Safety Report 16109757 (Version 1)
Quarter: 2019Q1

REPORT INFORMATION
  Report Type: Report from Study
  Country: US (occurrence: US)
  Receive Date: 20190325
  Receipt Date: 20190325
  Transmission Date: 20190418
  Serious: Yes (Disabling, Other)
  Sender: FDA-Public Use
  Company Number: US-SA-2015SA171688

PATIENT
  Age: 62 Year
  Sex: Male

DRUGS (3)
  1. INSULIN GLULISINE [Suspect]
     Active Substance: INSULIN GLULISINE
     Indication: DIABETES MELLITUS
     Dosage: 40 DF, QD
     Route: 058
     Dates: start: 20080101
  2. INSULIN GLARGINE [Suspect]
     Active Substance: INSULIN GLARGINE
     Indication: DIABETES MELLITUS
     Dosage: 80 DF,QD
     Route: 058
     Dates: start: 20080101
  3. MULTAQ [Suspect]
     Active Substance: DRONEDARONE
     Indication: ATRIAL FIBRILLATION
     Dosage: 40 DF,BID
     Route: 048
     Dates: start: 20080101

REACTIONS (3)
  - Weight increased [Not Recovered/Not Resolved]
  - Cardiac operation [Unknown]
  - Disability [Unknown]

NARRATIVE: CASE EVENT DATE: 20080101
